FAERS Safety Report 13128362 (Version 2)
Quarter: 2017Q3

REPORT INFORMATION
  Report Type: Report from Study
  Country: CO (occurrence: CO)
  Receive Date: 20170118
  Receipt Date: 20170908
  Transmission Date: 20171127
  Serious: Yes (Hospitalization, Other)
  Sender: FDA-Public Use
  Company Number: CO-ACTELION-A-NJ2017-148493

PATIENT
  Age: 43 Year
  Sex: Female

DRUGS (1)
  1. VENTAVIS [Suspect]
     Active Substance: ILOPROST
     Indication: PULMONARY ARTERIAL HYPERTENSION
     Dosage: 1 DF, BID
     Route: 055
     Dates: start: 20150331

REACTIONS (7)
  - Epistaxis [Recovered/Resolved]
  - Intentional product use issue [Unknown]
  - Inflammation [Recovered/Resolved]
  - Mouth haemorrhage [Recovered/Resolved]
  - Inappropriate prescribing [Unknown]
  - Headache [Not Recovered/Not Resolved]
  - Haematochezia [Recovered/Resolved]

NARRATIVE: CASE EVENT DATE: 20160325
